FAERS Safety Report 25285437 (Version 3)
Quarter: 2025Q4

REPORT INFORMATION
  Report Type: Report from Study
  Country: US (occurrence: US)
  Receive Date: 20250509
  Receipt Date: 20251111
  Transmission Date: 20260117
  Serious: Yes (Hospitalization)
  Sender: ABBVIE
  Company Number: US-ABBVIE-6029433

PATIENT
  Age: 65 Year
  Sex: Male

DRUGS (4)
  1. RINVOQ [Suspect]
     Active Substance: UPADACITINIB
     Indication: Rheumatoid arthritis
     Dosage: STRENGTH: 15 MG.
     Route: 048
     Dates: start: 202406, end: 202502
  2. RINVOQ [Suspect]
     Active Substance: UPADACITINIB
     Indication: Rheumatoid arthritis
     Dosage: STRENGTH: 15 MG, LAST ADMIN: 2025
     Route: 048
     Dates: start: 202504
  3. RINVOQ [Suspect]
     Active Substance: UPADACITINIB
     Indication: Rheumatoid arthritis
     Dosage: STRENGTH: 15 MG, FIRST AND LAST ADMIN: 2025
     Route: 048
  4. RINVOQ [Suspect]
     Active Substance: UPADACITINIB
     Indication: Rheumatoid arthritis
     Dosage: STRENGTH: 15 MG.
     Route: 048
     Dates: start: 202506

REACTIONS (18)
  - Acute kidney injury [Recovering/Resolving]
  - Arthralgia [Unknown]
  - Pain [Not Recovered/Not Resolved]
  - Back pain [Not Recovered/Not Resolved]
  - Musculoskeletal stiffness [Not Recovered/Not Resolved]
  - Spinal osteoarthritis [Not Recovered/Not Resolved]
  - Weight decreased [Unknown]
  - Weight increased [Unknown]
  - Arthropathy [Unknown]
  - General physical condition abnormal [Not Recovered/Not Resolved]
  - Nephrolithiasis [Unknown]
  - Feeding disorder [Recovered/Resolved]
  - Calculus bladder [Unknown]
  - Gastroenteritis viral [Recovered/Resolved]
  - Feeding disorder [Unknown]
  - Vomiting [Unknown]
  - Arthralgia [Unknown]
  - Dislocation of vertebra [Not Recovered/Not Resolved]

NARRATIVE: CASE EVENT DATE: 20240101
